FAERS Safety Report 7641558-9 (Version None)
Quarter: 2011Q3

REPORT INFORMATION
  Report Type: 
  Country: None (occurrence: None)
  Receive Date: 20110728
  Receipt Date: 20110725
  Transmission Date: 20111222
  Serious: Yes (Hospitalization)
  Sender: FDA-Public Use
  Company Number: EG-SANOFI-AVENTIS-2011SA047558

PATIENT
  Age: 17 Year
  Sex: Male

DRUGS (2)
  1. LANTUS [Suspect]
     Dosage: DOSE:20 UNIT(S)
     Route: 058
     Dates: start: 20110521, end: 20110723
  2. APIDRA [Suspect]
     Indication: DIABETES MELLITUS
     Dosage: DOSE:24 UNIT(S)
     Route: 058
     Dates: start: 20110521, end: 20110723

REACTIONS (6)
  - LOSS OF CONSCIOUSNESS [None]
  - VOMITING [None]
  - DYSPNOEA [None]
  - HYPERGLYCAEMIA [None]
  - DIABETIC KETOACIDOSIS [None]
  - DEHYDRATION [None]
